FAERS Safety Report 23177430 (Version 7)
Quarter: 2024Q4

REPORT INFORMATION
  Report Type: Spontaneous
  Country: GB (occurrence: GB)
  Receive Date: 20231113
  Receipt Date: 20241003
  Transmission Date: 20250115
  Serious: Yes (Hospitalization, Other)
  Sender: MYLAN
  Company Number: GB-MYLANLABS-2023M1119191

PATIENT
  Age: 52 Year
  Sex: Male

DRUGS (5)
  1. CLOZARIL [Suspect]
     Active Substance: CLOZAPINE
     Indication: Schizophrenia
     Dosage: UNK
     Route: 048
     Dates: start: 20090826, end: 2023
  2. CLOZARIL [Suspect]
     Active Substance: CLOZAPINE
     Dosage: 225 MILLIGRAM, BID
     Route: 048
     Dates: end: 202310
  3. CLOZARIL [Suspect]
     Active Substance: CLOZAPINE
     Dosage: 125 MILLIGRAM, BID
     Route: 048
     Dates: start: 20240828, end: 20240913
  4. CLOZARIL [Suspect]
     Active Substance: CLOZAPINE
     Dosage: 275 MILLIGRAM, BID (125+150 MILLIGRAM)
     Route: 048
     Dates: start: 20240914, end: 20240915
  5. CLOZARIL [Suspect]
     Active Substance: CLOZAPINE
     Dosage: 150 MILLIGRAM, BID
     Route: 048
     Dates: start: 20240916, end: 20240917

REACTIONS (12)
  - Hospitalisation [Unknown]
  - Mental impairment [Unknown]
  - Neutropenia [Recovered/Resolved]
  - White blood cell count decreased [Recovered/Resolved]
  - Cellulitis [Unknown]
  - Malaise [Unknown]
  - White blood cell count increased [Recovered/Resolved]
  - Eosinophil count decreased [Unknown]
  - Neutrophil count increased [Recovered/Resolved]
  - Heart rate increased [Unknown]
  - Therapy cessation [Unknown]
  - Extra dose administered [Unknown]

NARRATIVE: CASE EVENT DATE: 20230101
